FAERS Safety Report 6137588-9 (Version None)
Quarter: 2009Q1

REPORT INFORMATION
  Report Type: 
  Country: None (occurrence: None)
  Receive Date: 20090331
  Receipt Date: 20090320
  Transmission Date: 20090719
  Serious: Yes (Hospitalization)
  Sender: FDA-Public Use
  Company Number: PHHY2009GB00532

PATIENT
  Sex: Male

DRUGS (1)
  1. CLOZARIL [Suspect]
     Indication: SCHIZOPHRENIA
     Dosage: UNK
     Route: 048
     Dates: start: 19921008

REACTIONS (4)
  - ENDOTRACHEAL INTUBATION [None]
  - GASTROINTESTINAL TUBE INSERTION [None]
  - PNEUMONIA [None]
  - SEDATIVE THERAPY [None]
